FAERS Safety Report 8871658 (Version 3)
Quarter: 2013Q1

REPORT INFORMATION
  Report Type: Spontaneous
  Country: US (occurrence: US)
  Receive Date: 20121023
  Receipt Date: 20130117
  Transmission Date: 20140127
  Serious: Yes (Death, Other)
  Sender: FDA-Public Use
  Company Number: US-ASTELLAS-2012US007854

PATIENT
  Age: 67 Year
  Sex: Male

DRUGS (2)
  1. PROGRAF [Suspect]
     Indication: HEART TRANSPLANT
     Dosage: 2 MG, BID
     Route: 048
     Dates: start: 20100805, end: 20130101
  2. PROGRAF [Suspect]
     Dosage: 0.5 MG, BID
     Route: 048

REACTIONS (3)
  - Death [Fatal]
  - Convulsion [Recovered/Resolved]
  - Convulsion [Unknown]
